FAERS Safety Report 10576841 (Version 2)
Quarter: 2014Q4

REPORT INFORMATION
  Report Type: Report from Study
  Country: BE (occurrence: BE)
  Receive Date: 20141111
  Receipt Date: 20141111
  Transmission Date: 20150529
  Serious: Yes (Hospitalization)
  Sender: FDA-Public Use
  Company Number: BE-BRISTOL-MYERS SQUIBB COMPANY-20221701

PATIENT
  Age: 58 Year
  Sex: Female
  Weight: 44.6 kg

DRUGS (7)
  1. LYSODREN [Suspect]
     Active Substance: MITOTANE
     Indication: ADRENOCORTICAL CARCINOMA
     Dosage: 3 GRAM DAILY
  2. ASAFLOW [Concomitant]
     Active Substance: ASPIRIN
  3. HYDROCORTISONE. [Concomitant]
     Active Substance: HYDROCORTISONE
  4. SIMVASTATIN. [Concomitant]
     Active Substance: SIMVASTATIN
  5. SPIRULINA [Concomitant]
     Active Substance: SPIRULINA
  6. RISPERDAL [Concomitant]
     Active Substance: RISPERIDONE
  7. ALENDRONATE SODIUM. [Concomitant]
     Active Substance: ALENDRONATE SODIUM

REACTIONS (11)
  - Depressed mood [Recovered/Resolved]
  - Memory impairment [Not Recovered/Not Resolved]
  - Paranoia [Recovered/Resolved]
  - Cachexia [Recovered/Resolved]
  - Apraxia [Recovered/Resolved]
  - Fatigue [Not Recovered/Not Resolved]
  - Cognitive disorder [Recovered/Resolved]
  - Encephalopathy [Recovered/Resolved]
  - Hallucination, visual [Recovered/Resolved]
  - Nausea [Recovered/Resolved]
  - Vertigo [Not Recovered/Not Resolved]

NARRATIVE: CASE EVENT DATE: 201304
